FAERS Safety Report 18374938 (Version 7)
Quarter: 2023Q2

REPORT INFORMATION
  Report Type: Report from Study
  Country: US (occurrence: US)
  Receive Date: 20201012
  Receipt Date: 20230630
  Transmission Date: 20230722
  Serious: Yes (Hospitalization, Other)
  Sender: FDA-Public Use
  Company Number: US-JAZZ-2020-US-012250

PATIENT
  Age: 44 Year
  Sex: Male

DRUGS (32)
  1. XYREM [Suspect]
     Active Substance: SODIUM OXYBATE
     Indication: Narcolepsy
     Dosage: 1.5 GRAM, BID
     Route: 048
     Dates: start: 200706, end: 200707
  2. XYREM [Suspect]
     Active Substance: SODIUM OXYBATE
     Indication: Cataplexy
     Dosage: 2.25 GRAM, BID
     Route: 048
     Dates: start: 201109, end: 201406
  3. XYREM [Suspect]
     Active Substance: SODIUM OXYBATE
     Indication: Somnolence
     Dosage: DOSE ADJUSTMENT
     Route: 048
     Dates: start: 201406, end: 201908
  4. XYREM [Suspect]
     Active Substance: SODIUM OXYBATE
     Dosage: 3.5 GRAM, BID
     Route: 048
     Dates: start: 201908
  5. KETOROLAC [Concomitant]
     Active Substance: KETOROLAC TROMETHAMINE
     Indication: Product used for unknown indication
  6. BENADRYL ALLERGY [Concomitant]
     Active Substance: DIPHENHYDRAMINE HYDROCHLORIDE
     Indication: Product used for unknown indication
  7. MUCINEX D [Concomitant]
     Active Substance: GUAIFENESIN\PSEUDOEPHEDRINE HYDROCHLORIDE
     Indication: Product used for unknown indication
  8. AMOXICILLIN [Concomitant]
     Active Substance: AMOXICILLIN
     Indication: Product used for unknown indication
  9. DAYTIME COLD RELIEF [Concomitant]
     Indication: Product used for unknown indication
  10. LEXAPRO [Concomitant]
     Active Substance: ESCITALOPRAM OXALATE
     Indication: Product used for unknown indication
  11. ACETAMINOPHEN\CODEINE PHOSPHATE [Concomitant]
     Active Substance: ACETAMINOPHEN\CODEINE PHOSPHATE
     Indication: Product used for unknown indication
  12. ALEVE [Concomitant]
     Active Substance: NAPROXEN SODIUM
     Indication: Product used for unknown indication
  13. BENZONATATE [Concomitant]
     Active Substance: BENZONATATE
     Indication: Product used for unknown indication
  14. NYQUIL COLD AND FLU [Concomitant]
     Active Substance: ACETAMINOPHEN\DEXTROMETHORPHAN HYDROBROMIDE\DOXYLAMINE SUCCINATE
     Indication: Product used for unknown indication
  15. ZITHROMAX [Concomitant]
     Active Substance: AZITHROMYCIN DIHYDRATE
     Indication: Product used for unknown indication
  16. CETIRIZINE HCL [Concomitant]
     Active Substance: CETIRIZINE HYDROCHLORIDE
     Indication: Product used for unknown indication
  17. CHLORHEXIDINE [Concomitant]
     Active Substance: CHLORHEXIDINE
     Indication: Product used for unknown indication
  18. FLUTICASONE PROPIONATE [Concomitant]
     Active Substance: FLUTICASONE PROPIONATE
     Indication: Product used for unknown indication
  19. IBUPROFEN [Concomitant]
     Active Substance: IBUPROFEN
     Indication: Product used for unknown indication
  20. MODAFINIL [Concomitant]
     Active Substance: MODAFINIL
     Indication: Product used for unknown indication
  21. VIAGRA [Concomitant]
     Active Substance: SILDENAFIL CITRATE
     Indication: Product used for unknown indication
  22. VITAMIN D3 [Concomitant]
     Active Substance: CHOLECALCIFEROL
     Indication: Product used for unknown indication
  23. VICODIN [Concomitant]
     Active Substance: ACETAMINOPHEN\HYDROCODONE BITARTRATE
     Indication: Product used for unknown indication
  24. NEURONTIN [Concomitant]
     Active Substance: GABAPENTIN
     Indication: Product used for unknown indication
  25. AMITRIPTYLINE HYDROCHLORIDE [Concomitant]
     Active Substance: AMITRIPTYLINE HYDROCHLORIDE
     Indication: Product used for unknown indication
  26. LIPITOR [Concomitant]
     Active Substance: ATORVASTATIN CALCIUM
     Indication: Product used for unknown indication
  27. PSEUDOEPHEDRINE [Concomitant]
     Active Substance: PSEUDOEPHEDRINE
     Indication: Product used for unknown indication
  28. DESOXYN [Concomitant]
     Active Substance: METHAMPHETAMINE HYDROCHLORIDE
     Indication: Product used for unknown indication
  29. GABAPENTIN [Concomitant]
     Active Substance: GABAPENTIN
     Indication: Product used for unknown indication
  30. MUCINEX [Concomitant]
     Active Substance: GUAIFENESIN
     Indication: Product used for unknown indication
  31. TIZANIDINE HYDROCHLORIDE [Concomitant]
     Active Substance: TIZANIDINE HYDROCHLORIDE
     Indication: Product used for unknown indication
  32. TRAMADOL HCL [Concomitant]
     Active Substance: TRAMADOL HYDROCHLORIDE
     Indication: Product used for unknown indication

REACTIONS (9)
  - Infection [Unknown]
  - Fungal infection [Unknown]
  - Pneumonia bacterial [Unknown]
  - Post procedural bile leak [Recovering/Resolving]
  - Cholelithiasis [Recovering/Resolving]
  - Liver disorder [Recovering/Resolving]
  - Gastrooesophageal reflux disease [Unknown]
  - Gastroenteritis [Not Recovered/Not Resolved]
  - Hepatic steatosis [Recovering/Resolving]

NARRATIVE: CASE EVENT DATE: 20200501
